FAERS Safety Report 26194702 (Version 1)
Quarter: 2025Q4

REPORT INFORMATION
  Report Type: Spontaneous
  Country: JP (occurrence: JP)
  Receive Date: 20251224
  Receipt Date: 20251224
  Transmission Date: 20260118
  Serious: Yes (Other)
  Sender: NOVARTIS
  Company Number: JP-002147023-NVSJ2025JP012230

PATIENT
  Sex: Female

DRUGS (1)
  1. ENTRESTO [Suspect]
     Active Substance: SACUBITRIL\VALSARTAN
     Indication: Hypertension
     Dosage: 100 MG, BID,MORNING AND EVENING
     Route: 048

REACTIONS (4)
  - Blood pressure increased [Unknown]
  - Somnolence [Unknown]
  - Diarrhoea [Unknown]
  - Off label use [Unknown]
